FAERS Safety Report 11170161 (Version 1)
Quarter: 2015Q2

REPORT INFORMATION
  Report Type: Spontaneous
  Country: US (occurrence: US)
  Receive Date: 20150608
  Receipt Date: 20150608
  Transmission Date: 20150821
  Serious: Yes (Other)
  Sender: FDA-Public Use
  Company Number: US-JNJFOC-20150603695

PATIENT
  Age: 87 Year
  Sex: Female
  Weight: 65.77 kg

DRUGS (8)
  1. ZOCOR [Concomitant]
     Active Substance: SIMVASTATIN
     Indication: BLOOD CHOLESTEROL
     Route: 065
  2. FOSAMAX [Concomitant]
     Active Substance: ALENDRONATE SODIUM
     Indication: ARTHRITIS
     Route: 065
     Dates: start: 2000
  3. RISPERDAL CONSTA [Suspect]
     Active Substance: RISPERIDONE
     Indication: DELUSIONAL DISORDER, UNSPECIFIED TYPE
     Route: 030
  4. BENZTROPINE [Concomitant]
     Active Substance: BENZTROPINE
     Indication: TREMOR
     Route: 065
  5. NORVASC [Concomitant]
     Active Substance: AMLODIPINE BESYLATE
     Indication: BLOOD PRESSURE
     Route: 065
  6. FOSAMAX [Concomitant]
     Active Substance: ALENDRONATE SODIUM
     Indication: OSTEOPOROSIS
     Route: 065
     Dates: start: 2000
  7. RISPERDAL CONSTA [Suspect]
     Active Substance: RISPERIDONE
     Indication: DELUSIONAL DISORDER, UNSPECIFIED TYPE
     Route: 030
  8. METOPROLOL [Concomitant]
     Active Substance: METOPROLOL
     Indication: BLOOD CHOLESTEROL
     Route: 065

REACTIONS (6)
  - Incorrect drug administration duration [Unknown]
  - Product quality issue [Unknown]
  - Drug dose omission [Unknown]
  - Surgery [Unknown]
  - Syringe issue [Unknown]
  - Tremor [Not Recovered/Not Resolved]

NARRATIVE: CASE EVENT DATE: 2015
